FAERS Safety Report 9760748 (Version 1)
Quarter: 2013Q4

REPORT INFORMATION
  Report Type: Spontaneous
  Country: US (occurrence: US)
  Receive Date: 20131216
  Receipt Date: 20131216
  Transmission Date: 20140711
  Serious: No
  Sender: FDA-Public Use
  Company Number: US-BIOGENIDEC-2013BI102015

PATIENT
  Age: 58 Year
  Sex: Male
  Weight: 91 kg

DRUGS (14)
  1. TECFIDERA [Suspect]
     Indication: PRODUCT USED FOR UNKNOWN INDICATION
     Route: 048
  2. TECFIDERA [Suspect]
     Indication: PRODUCT USED FOR UNKNOWN INDICATION
     Route: 048
  3. ZOCOR [Concomitant]
     Route: 048
  4. FLUTICASONE [Concomitant]
  5. NEURONTIN [Concomitant]
     Route: 048
  6. VICODIN [Concomitant]
     Route: 048
  7. CLONAZEPAM [Concomitant]
     Route: 048
  8. BACLOFEN [Concomitant]
     Route: 048
  9. FAMOTIDINE [Concomitant]
     Route: 048
  10. PRILOSEC [Concomitant]
     Route: 048
  11. HYDROCHLOROT [Concomitant]
     Route: 048
  12. VITAMIN D3 [Concomitant]
     Route: 048
  13. PROVIGIL [Concomitant]
     Route: 048
  14. GLUCOSAMINE [Concomitant]
     Route: 048

REACTIONS (3)
  - Rash [Unknown]
  - Pruritus [Unknown]
  - Feeling hot [Unknown]
